FAERS Safety Report 9911905 (Version 2)
Quarter: 2014Q1

REPORT INFORMATION
  Report Type: Spontaneous
  Country: US (occurrence: US)
  Receive Date: 20140219
  Receipt Date: 20140219
  Transmission Date: 20141002
  Serious: No
  Sender: FDA-Public Use
  Company Number: US-MYLANLABS-2013S1017599

PATIENT
  Age: 58 Year
  Sex: Male
  Weight: 77.1 kg

DRUGS (2)
  1. EPIPEN [Suspect]
     Dosage: 0.3 MG PRN
     Dates: start: 2010
  2. BENADRYL [Concomitant]
     Indication: HYPERSENSITIVITY
     Dosage: UNK, PRN

REACTIONS (2)
  - Injection site pain [Not Recovered/Not Resolved]
  - Injection site reaction [Not Recovered/Not Resolved]
